FAERS Safety Report 7835525-X (Version None)
Quarter: 2011Q4

REPORT INFORMATION
  Report Type: 
  Country: None (occurrence: None)
  Receive Date: 20111024
  Receipt Date: 20111013
  Transmission Date: 20120403
  Serious: Yes (Other)
  Sender: FDA-Public Use
  Company Number: US-ASTRAZENECA-2011SE44403

PATIENT
  Age: 71 Year
  Sex: Female

DRUGS (3)
  1. ZESTRIL [Suspect]
     Route: 048
  2. ATACAND [Suspect]
     Route: 048
  3. OMEPRAZOLE [Suspect]
     Route: 048

REACTIONS (4)
  - HEART INJURY [None]
  - EMOTIONAL DISTRESS [None]
  - RASH [None]
  - ROAD TRAFFIC ACCIDENT [None]
